FAERS Safety Report 5466978-2 (Version None)
Quarter: 2007Q3

REPORT INFORMATION
  Report Type: 
  Country: None (occurrence: None)
  Receive Date: 20070921
  Receipt Date: 20070921
  Transmission Date: 20080115
  Serious: Yes (Other)
  Sender: FDA-Public Use
  Company Number: None

PATIENT
  Age: 36 Year
  Sex: Male
  Weight: 63.5036 kg

DRUGS (1)
  1. LYRICA [Suspect]
     Indication: FIBROMYALGIA
     Dosage: 75MG 2X/DAY PO
     Route: 048

REACTIONS (4)
  - ALOPECIA [None]
  - ILL-DEFINED DISORDER [None]
  - PHARYNGOLARYNGEAL PAIN [None]
  - PRURITUS [None]
